FAERS Safety Report 4451862-3 (Version None)
Quarter: 2004Q3

REPORT INFORMATION
  Report Type: 
  Country: None (occurrence: None)
  Receive Date: 20040913
  Receipt Date: 20040503
  Transmission Date: 20050211
  Serious: No
  Sender: FDA-Public Use
  Company Number: 2004-BP-03417BP

PATIENT
  Age: 79 Year
  Sex: Male
  Weight: 71 kg

DRUGS (14)
  1. SPIRIVA [Suspect]
     Indication: ASTHMA
     Dosage: 18 MCG (18 MCG), IH
     Route: 055
     Dates: end: 20040619
  2. SEREVENT [Concomitant]
  3. AEROBID [Concomitant]
  4. SINGULAIR [Concomitant]
  5. THEOPHYLLINE [Concomitant]
  6. OXYGEN (OXYGEN) [Concomitant]
  7. WARFARIN (WARFARIN) [Concomitant]
  8. MIACALCIN [Concomitant]
  9. CALCIUM [Concomitant]
  10. DITIAZEM [Concomitant]
  11. BUSBAR [Concomitant]
  12. TRIAMTERENE (TRIAMTERENE) [Concomitant]
  13. HYDRALAZINE HCL TAB [Concomitant]
  14. FLOVENT [Concomitant]

REACTIONS (1)
  - DYSPNOEA [None]
